FAERS Safety Report 5663397-0 (Version None)
Quarter: 2008Q1

REPORT INFORMATION
  Report Type: 
  Country: None (occurrence: None)
  Receive Date: 20080313
  Receipt Date: 20080307
  Transmission Date: 20080703
  Serious: Yes (Hospitalization)
  Sender: FDA-Public Use
  Company Number: US-ELI_LILLY_AND_COMPANY-US200803001720

PATIENT
  Age: 66 Year
  Sex: Female

DRUGS (5)
  1. BYETTA [Suspect]
     Indication: DIABETES MELLITUS
     Dosage: 10 UG, UNKNOWN
     Route: 058
  2. METFORMIN [Concomitant]
     Dosage: UNK, UNKNOWN
  3. GLYBURIDE [Concomitant]
     Dosage: UNK, UNKNOWN
  4. XANAX [Concomitant]
     Dosage: UNK, UNKNOWN
  5. PAROXETINE HCL [Concomitant]
     Dosage: UNK, UNKNOWN

REACTIONS (3)
  - BLOOD GLUCOSE INCREASED [None]
  - HIATUS HERNIA [None]
  - INTERSTITIAL LUNG DISEASE [None]
